FAERS Safety Report 9771047 (Version 3)
Quarter: 2014Q2

REPORT INFORMATION
  Report Type: Report from Study
  Country: US (occurrence: US)
  Receive Date: 20131218
  Receipt Date: 20140620
  Transmission Date: 20141212
  Serious: Yes (Death, Other)
  Sender: FDA-Public Use
  Company Number: US-GILEAD-2013-0090203

PATIENT
  Age: 1 Day
  Sex: Female
  Weight: 2.13 kg

DRUGS (4)
  1. EMTRICITABINE/TENOFOVIR DISOPROXIL FUMARATE [Suspect]
     Indication: HIV INFECTION
     Dosage: 1 DF, QD
     Route: 064
     Dates: start: 20130312
  2. DARUNAVIR [Suspect]
     Indication: HIV INFECTION
     Dosage: 2 DF, QD
     Route: 064
     Dates: start: 20130312
  3. RITONAVIR [Suspect]
     Indication: HIV INFECTION
     Dosage: 1 DF, QD
     Route: 064
     Dates: start: 20130312
  4. ZIDOVUDINE [Suspect]
     Indication: HIV INFECTION
     Dosage: 1 MG/KG, Q1HR
     Route: 064
     Dates: start: 20130806, end: 20130806

REACTIONS (4)
  - Death [Fatal]
  - Disseminated intravascular coagulation [Unknown]
  - Subgaleal haematoma [Unknown]
  - Premature baby [Not Recovered/Not Resolved]
